FAERS Safety Report 11453442 (Version 1)
Quarter: 2015Q3

REPORT INFORMATION
  Report Type: Spontaneous
  Country: US (occurrence: US)
  Receive Date: 20150831
  Receipt Date: 20150831
  Transmission Date: 20151125
  Serious: No
  Sender: FDA-Public Use
  Company Number: US-ELI_LILLY_AND_COMPANY-US200911003886

PATIENT
  Age: 29 Year
  Sex: Female

DRUGS (2)
  1. GLYBURIDE. [Concomitant]
     Active Substance: GLYBURIDE
     Indication: GESTATIONAL DIABETES
  2. CYMBALTA [Suspect]
     Active Substance: DULOXETINE HYDROCHLORIDE
     Indication: MAJOR DEPRESSION
     Dosage: 60 MG, UNK

REACTIONS (3)
  - Gestational diabetes [Unknown]
  - Exposure during pregnancy [Unknown]
  - Exposure during breast feeding [Unknown]

NARRATIVE: CASE EVENT DATE: 200905
